FAERS Safety Report 4768925-5 (Version None)
Quarter: 2005Q3

REPORT INFORMATION
  Report Type: 
  Country: None (occurrence: None)
  Receive Date: 20050914
  Receipt Date: 20050831
  Transmission Date: 20060218
  Serious: Yes (Death)
  Sender: FDA-Public Use
  Company Number: 430006M05DEU

PATIENT
  Age: 45 Year
  Sex: Female

DRUGS (3)
  1. RALENOVA (MITOXANTRONE HYDROCHLORIDE) [Suspect]
     Indication: MULTIPLE SCLEROSIS
     Dosage: INTRAVENOUS (NOT OTHERWISE SPECIFIED)
     Dates: start: 20000601, end: 20031101
  2. LEVODOPA [Concomitant]
  3. CABERGOLINE [Concomitant]

REACTIONS (4)
  - ACUTE PROMYELOCYTIC LEUKAEMIA [None]
  - ANAEMIA [None]
  - GRAND MAL CONVULSION [None]
  - RESTLESS LEGS SYNDROME [None]
